FAERS Safety Report 4801490-2 (Version None)
Quarter: 2005Q4

REPORT INFORMATION
  Report Type: 
  Country: None (occurrence: None)
  Receive Date: 20051018
  Receipt Date: 20051006
  Transmission Date: 20060501
  Serious: Yes (Hospitalization)
  Sender: FDA-Public Use
  Company Number: US-JNJFOC-20051001858

PATIENT
  Sex: Female

DRUGS (14)
  1. INFLIXIMAB [Suspect]
     Indication: RHEUMATOID ARTHRITIS
     Route: 042
     Dates: start: 20010307
  2. ASPIRIN [Concomitant]
  3. DARVOCET [Concomitant]
  4. DARVOCET [Concomitant]
  5. DYAZIDE [Concomitant]
  6. DYAZIDE [Concomitant]
  7. METHOTREXATE [Concomitant]
  8. MIACALCIN [Concomitant]
  9. PRAVACHOL [Concomitant]
  10. ACTONEL [Concomitant]
  11. CALCIUM PLUS D [Concomitant]
  12. ASCORBIC ACID [Concomitant]
  13. TEARS PLUS [Concomitant]
  14. TEARS PLUS [Concomitant]

REACTIONS (5)
  - ARTERIOVENOUS MALFORMATION [None]
  - BRONCHITIS [None]
  - CHEST PAIN [None]
  - GASTROINTESTINAL HAEMORRHAGE [None]
  - PULMONARY MASS [None]
